FAERS Safety Report 9033620 (Version 3)
Quarter: 2013Q3

REPORT INFORMATION
  Report Type: Report from Study
  Country: BR (occurrence: BR)
  Receive Date: 20130128
  Receipt Date: 20130823
  Transmission Date: 20140515
  Serious: Yes (Other)
  Sender: FDA-Public Use
  Company Number: BR-AMGEN-BRACT2011002463

PATIENT
  Age: 80 Year
  Sex: Female
  Weight: 56 kg

DRUGS (16)
  1. ETANERCEPT [Suspect]
     Indication: RHEUMATOID ARTHRITIS
     Dosage: 25 MG, 2X/WEEK
     Route: 058
     Dates: start: 2008, end: 2010
  2. ETANERCEPT [Suspect]
     Dosage: 50 MG, UNK
     Route: 065
     Dates: start: 2010, end: 2010
  3. RANITIDINE [Concomitant]
     Dosage: 150 MG, UNK
  4. CINNARIZINE [Concomitant]
     Dosage: 8 MG, 1X/DAY
  5. ALGINAC [Concomitant]
     Indication: PAIN
     Dosage: 1000 MG, 1X/DAY
     Dates: start: 2008
  6. ALGINAC [Concomitant]
     Indication: VITAMIN SUPPLEMENTATION
     Dosage: UNK
  7. SIMVASTATIN [Concomitant]
     Dosage: 20 MG, UNK
  8. PREDNISONE [Concomitant]
     Indication: PAIN
     Dosage: 5 MG, 1X/DAY
     Dates: start: 2008
  9. PREDNISONE [Concomitant]
     Indication: RHEUMATOID ARTHRITIS
  10. POLARAMINE                         /00043702/ [Concomitant]
     Dosage: UNK, AS NEEDED
  11. METHOTREXATE [Concomitant]
     Indication: PAIN
     Dosage: 5MG, 8MG AND 50MG
     Dates: start: 2009
  12. ENDOFOLIN                          /00024201/ [Concomitant]
     Indication: INFLAMMATION
     Dosage: 5 MG, THREE TIMES A WEEK
     Dates: start: 2003
  13. ENDOFOLIN                          /00024201/ [Concomitant]
     Indication: PAIN
     Dosage: UNK
  14. POLARAMINE [Concomitant]
     Dosage: UNK, AS NEEDED
  15. ENDOFOLIN [Concomitant]
     Indication: INFLAMMATION
     Dosage: 5 MG, THREE TIMES A WEEK
     Dates: start: 2003
  16. ENDOFOLIN [Concomitant]
     Indication: PAIN

REACTIONS (15)
  - Gastric ulcer [Unknown]
  - Arthritis [Unknown]
  - Rheumatoid factor increased [Unknown]
  - Arthralgia [Unknown]
  - Pain in extremity [Not Recovered/Not Resolved]
  - Bedridden [Not Recovered/Not Resolved]
  - Gait disturbance [Not Recovered/Not Resolved]
  - Feeling hot [Not Recovered/Not Resolved]
  - Pain [Not Recovered/Not Resolved]
  - Malaise [Unknown]
  - Dyspepsia [Unknown]
  - Haemoptysis [Unknown]
  - Nasopharyngitis [Recovered/Resolved]
  - Pneumonia [Unknown]
  - Influenza [Unknown]
